FAERS Safety Report 8131152-8 (Version None)
Quarter: 2012Q1

REPORT INFORMATION
  Report Type: 
  Country: None (occurrence: None)
  Receive Date: 20120209
  Receipt Date: 20120209
  Transmission Date: 20120608
  Serious: Yes (Hospitalization)
  Sender: FDA-Public Use
  Company Number: None

PATIENT
  Sex: Female
  Weight: 117.3 kg

DRUGS (2)
  1. VIIBRYD [Suspect]
     Indication: ANXIETY
     Dosage: 10MG DAILY PO
     Route: 048
     Dates: start: 20111201, end: 20120121
  2. VIIBRYD [Suspect]
     Dosage: 40MG TWICE DAILY PO
     Route: 048

REACTIONS (5)
  - EMOTIONAL DISORDER [None]
  - ABNORMAL DREAMS [None]
  - CRYING [None]
  - CHOKING SENSATION [None]
  - ANXIETY [None]
